FAERS Safety Report 24721383 (Version 3)
Quarter: 2025Q1

REPORT INFORMATION
  Report Type: Spontaneous
  Country: IN (occurrence: IN)
  Receive Date: 20241211
  Receipt Date: 20250123
  Transmission Date: 20250408
  Serious: Yes (Other)
  Sender: PFIZER
  Company Number: IN-PFIZER INC-PV202400158281

PATIENT
  Age: 59 Year
  Sex: Female
  Weight: 49.3 kg

DRUGS (12)
  1. INLYTA [Suspect]
     Active Substance: AXITINIB
     Indication: Metastatic renal cell carcinoma
     Dosage: 5 MG, 2X/DAY (MORNING AND EVENING)
     Route: 048
     Dates: start: 20240817
  2. PEMBROLIZUMAB [Suspect]
     Active Substance: PEMBROLIZUMAB
     Route: 042
     Dates: end: 20240930
  3. PEMBROLIZUMAB [Suspect]
     Active Substance: PEMBROLIZUMAB
     Route: 042
     Dates: start: 20241026
  4. PEMBROLIZUMAB [Suspect]
     Active Substance: PEMBROLIZUMAB
     Route: 042
     Dates: start: 20241116
  5. DENOSUMAB [Suspect]
     Active Substance: DENOSUMAB
     Route: 058
  6. CCM [Concomitant]
     Dosage: 1 DF, 1X/DAY, NIGHT WITH FOOD AS DIRECTED TILL REVIEW
     Route: 048
  7. TAPAL-ER [Concomitant]
     Dosage: 50 MG, 3X/DAY, 1 TABLET MORNING, AFTERNOON, EVENING, AS DIRECTED, TILL REVIEW
     Route: 048
  8. CONCOR AM [Concomitant]
     Dosage: 1 DF, 1X/DAY, 1 TABLET MORNING, AS DIRECTED, TILL REVIEW
     Route: 048
  9. CLOGEN [Concomitant]
     Dosage: 10 MG, 3X/DAY, 1 TAB, MORNG, AFTERN, EVENG, AS DIRECTED TILL REVIEW DO NOT SWALLOW USE AS LOGENZ
     Route: 048
  10. EFATOP PE [Concomitant]
     Dosage: UNK, 3X/DAY (EMOLIENT, 1 APPLICATION ON SKIN, MORNING, AFTERNOON, EVENING, AS DIRECTED, TILL REVIEW
     Route: 061
  11. CREMAFFIN PLUS [Concomitant]
     Dosage: 15 ML, 1X/DAY  (15 ML ONCE BED TIME, AS DIRECTED, TILL REVIEW)
     Route: 048
  12. BETADINE [Concomitant]
     Active Substance: POVIDONE-IODINE
     Dosage: UNK, 3X/DAY, WITH LUKE WARM WATER

REACTIONS (12)
  - Humerus fracture [Unknown]
  - Escherichia urinary tract infection [Not Recovered/Not Resolved]
  - Hypoacusis [Recovered/Resolved]
  - Tinnitus [Recovered/Resolved]
  - Joint range of motion decreased [Unknown]
  - Arthralgia [Recovering/Resolving]
  - Mucosal inflammation [Recovered/Resolved]
  - Rash [Recovered/Resolved]
  - Diarrhoea [Recovered/Resolved]
  - Fatigue [Recovering/Resolving]
  - Blood pressure systolic increased [Unknown]
  - Oxygen saturation decreased [Unknown]

NARRATIVE: CASE EVENT DATE: 20240101
